FAERS Safety Report 6096031-9 (Version None)
Quarter: 2009Q1

REPORT INFORMATION
  Report Type: 
  Country: None (occurrence: None)
  Receive Date: 20090227
  Receipt Date: 20080903
  Transmission Date: 20090719
  Serious: Yes (Other)
  Sender: FDA-Public Use
  Company Number: A0742457A

PATIENT
  Age: 34 Year
  Sex: Male
  Weight: 83.2 kg

DRUGS (2)
  1. LAMICTAL [Suspect]
     Indication: BIPOLAR DISORDER
     Dosage: 25MG SEE DOSAGE TEXT
     Route: 048
     Dates: start: 20080702, end: 20080812
  2. GEODON [Concomitant]
     Dosage: 40MG TWICE PER DAY
     Route: 048
     Dates: start: 20080101

REACTIONS (3)
  - DERMATITIS CONTACT [None]
  - OROPHARYNGEAL BLISTERING [None]
  - RASH [None]
